FAERS Safety Report 7080811-7 (Version None)
Quarter: 2010Q4

REPORT INFORMATION
  Report Type: 
  Country: None (occurrence: None)
  Receive Date: 20101102
  Receipt Date: 20101102
  Transmission Date: 20110411
  Serious: Yes (Other)
  Sender: FDA-Public Use
  Company Number: None

PATIENT
  Age: 3 Year
  Sex: Female
  Weight: 14.9 kg

DRUGS (2)
  1. GAMUNEX [Suspect]
     Dosage: 29.8 GRAMS ONCE IV  ONE DOSE
     Route: 042
     Dates: start: 20100911, end: 20100911
  2. GAMUNEX [Suspect]
     Dosage: 29.8 GRAMS ONCE IV  ONE DOSE
     Route: 042
     Dates: start: 20100913, end: 20100913

REACTIONS (6)
  - ANAEMIA [None]
  - ASTHENIA [None]
  - HEADACHE [None]
  - INFLAMMATORY MARKER INCREASED [None]
  - PALLOR [None]
  - PYREXIA [None]
